FAERS Safety Report 20618591 (Version 1)
Quarter: 2022Q1

REPORT INFORMATION
  Report Type: Spontaneous
  Country: US (occurrence: US)
  Receive Date: 20220322
  Receipt Date: 20220322
  Transmission Date: 20220423
  Serious: Yes (Other)
  Sender: FDA-Public Use
  Company Number: US-ALVOGEN-2022-ALVOGEN-119167

PATIENT
  Age: 64 Year
  Sex: Female

DRUGS (1)
  1. MACROBID [Suspect]
     Active Substance: NITROFURANTOIN\NITROFURANTOIN MONOHYDRATE
     Indication: Urinary tract infection

REACTIONS (6)
  - Chest pain [Recovered/Resolved]
  - Back pain [Recovered/Resolved]
  - Blindness [Recovered/Resolved]
  - Muscular weakness [Recovered/Resolved]
  - Rash [Not Recovered/Not Resolved]
  - Hypersensitivity [Unknown]
